FAERS Safety Report 10610672 (Version 1)
Quarter: 2014Q4

REPORT INFORMATION
  Report Type: Spontaneous
  Country: GB (occurrence: GB)
  Receive Date: 20141126
  Receipt Date: 20141126
  Transmission Date: 20150529
  Serious: Yes (Other)
  Sender: FDA-Public Use
  Company Number: GB-PFIZER INC-2014322818

PATIENT
  Age: 83 Year
  Sex: Male
  Weight: 95.25 kg

DRUGS (4)
  1. INDAPAMIDE. [Suspect]
     Active Substance: INDAPAMIDE
     Indication: HYPERTENSION
     Dosage: 2.5 MG, 1X/DAY
     Route: 048
     Dates: start: 201404, end: 20141103
  2. OMEPRAZOLE. [Concomitant]
     Active Substance: OMEPRAZOLE
     Dosage: UNK
     Route: 065
  3. PARACETAMOL [Concomitant]
     Active Substance: ACETAMINOPHEN
     Dosage: UNK
     Route: 065
  4. RAMIPRIL. [Suspect]
     Active Substance: RAMIPRIL
     Dosage: 2.5 MG, CYCLIC
     Route: 048
     Dates: start: 201410, end: 20141105

REACTIONS (13)
  - Malaise [Recovering/Resolving]
  - Altered state of consciousness [Recovering/Resolving]
  - Dysmorphism [Unknown]
  - Urinary tract infection [Unknown]
  - Delirium [Recovering/Resolving]
  - Dysarthria [Recovering/Resolving]
  - Muscle twitching [Recovering/Resolving]
  - Logorrhoea [Recovering/Resolving]
  - Muscular weakness [Recovering/Resolving]
  - Decreased appetite [Recovering/Resolving]
  - Lip dry [Recovering/Resolving]
  - Seizure like phenomena [Unknown]
  - Hyponatraemia [Unknown]

NARRATIVE: CASE EVENT DATE: 201404
